FAERS Safety Report 10252904 (Version 1)
Quarter: 2014Q2

REPORT INFORMATION
  Report Type: Other
  Country: CA (occurrence: CA)
  Receive Date: 20140623
  Receipt Date: 20140623
  Transmission Date: 20141212
  Serious: Yes (Hospitalization, Other)
  Sender: FDA-Public Use
  Company Number: CA-ACORDA-ACO_104113_2014

PATIENT
  Age: 69 Year
  Sex: Male

DRUGS (1)
  1. FAMPYRA [Suspect]
     Indication: GAIT DISTURBANCE
     Dosage: 10 MG, BID
     Route: 048
     Dates: start: 20130705, end: 2014

REACTIONS (1)
  - Renal failure [Not Recovered/Not Resolved]
